FAERS Safety Report 9694989 (Version 1)
Quarter: 2013Q4

REPORT INFORMATION
  Report Type: Spontaneous
  Country: DE (occurrence: DE)
  Receive Date: 20131119
  Receipt Date: 20131119
  Transmission Date: 20140711
  Serious: Yes (Hospitalization)
  Sender: FDA-Public Use
  Company Number: DE-ROCHE-1303755

PATIENT
  Age: 53 Year
  Sex: Male
  Weight: 62 kg

DRUGS (5)
  1. COPEGUS [Suspect]
     Indication: HEPATITIS C
     Route: 048
     Dates: start: 20130614, end: 20130929
  2. PEGASYS [Suspect]
     Indication: HEPATITIS C
     Route: 058
     Dates: start: 20130614, end: 20130929
  3. VICTRELIS [Suspect]
     Indication: HEPATITIS C
     Route: 065
     Dates: start: 20130711, end: 20130929
  4. RAMIPRIL [Concomitant]
     Indication: HYPERTENSION
     Route: 048
  5. ASS [Concomitant]
     Indication: MYOCARDIAL INFARCTION
     Route: 048

REACTIONS (1)
  - Pancreatitis necrotising [Recovering/Resolving]
